FAERS Safety Report 6449658-6 (Version None)
Quarter: 2009Q4

REPORT INFORMATION
  Report Type: 
  Country: None (occurrence: None)
  Receive Date: 20091120
  Receipt Date: 20091112
  Transmission Date: 20100525
  Serious: Yes (Other)
  Sender: FDA-Public Use
  Company Number: PHHY2009AT45866

PATIENT
  Age: 63 Year
  Sex: Female
  Weight: 65 kg

DRUGS (4)
  1. STALEVO 100 [Suspect]
     Indication: PARKINSON'S DISEASE
     Dosage: 50 MG, QD
     Route: 048
     Dates: start: 20090916, end: 20091014
  2. MARCUMAR [Concomitant]
     Indication: ATRIAL FIBRILLATION
     Dosage: 1 TO 1 AND HALF ALTERNATING
     Route: 048
  3. PROTON PUMP INHIBITORS [Concomitant]
  4. LANSOBENE [Concomitant]

REACTIONS (6)
  - COAGULATION TEST ABNORMAL [None]
  - DIARRHOEA [None]
  - GASTROENTERITIS [None]
  - HAEMATEMESIS [None]
  - HAEMATOCHEZIA [None]
  - VOMITING [None]
